FAERS Safety Report 25441968 (Version 3)
Quarter: 2025Q4

REPORT INFORMATION
  Report Type: Spontaneous
  Country: US (occurrence: US)
  Receive Date: 20250616
  Receipt Date: 20251006
  Transmission Date: 20260118
  Serious: Yes (Hospitalization, Other)
  Sender: VERTEX
  Company Number: US-VERTEX PHARMACEUTICALS-2025-009463

PATIENT

DRUGS (1)
  1. JOURNAVX [Suspect]
     Active Substance: SUZETRIGINE
     Indication: Pain
     Dosage: UNK
     Route: 048

REACTIONS (9)
  - Myocardial infarction [Unknown]
  - Dizziness [Unknown]
  - Chest pain [Unknown]
  - Feeling abnormal [Unknown]
  - Psychogenic seizure [Not Recovered/Not Resolved]
  - Nervousness [Unknown]
  - Sleep disorder [Unknown]
  - General physical health deterioration [Not Recovered/Not Resolved]
  - Stress [Not Recovered/Not Resolved]
